FAERS Safety Report 10607563 (Version 2)
Quarter: 2014Q4

REPORT INFORMATION
  Report Type: Spontaneous
  Country: GB (occurrence: GB)
  Receive Date: 20141125
  Receipt Date: 20141125
  Transmission Date: 20150529
  Serious: Yes (Death, Other)
  Sender: FDA-Public Use
  Company Number: GB-BRISTOL-MYERS SQUIBB COMPANY-21489059

PATIENT
  Age: 48 Year
  Sex: Male

DRUGS (9)
  1. CARBOPLATIN. [Suspect]
     Active Substance: CARBOPLATIN
     Indication: NEOPLASM MALIGNANT
     Route: 042
     Dates: start: 201409
  2. ZAPONEX [Suspect]
     Active Substance: CLOZAPINE
     Dosage: 9JAN12-AUG14 TABLET?RESTART 5SEP14-30SEP14
     Route: 048
     Dates: start: 20120109, end: 20140930
  3. METHYLDOPA. [Concomitant]
     Active Substance: METHYLDOPA
  4. ETOPOSIDE. [Suspect]
     Active Substance: ETOPOSIDE
     Indication: NEOPLASM MALIGNANT
     Route: 048
     Dates: start: 201409
  5. ALLOPURINOL. [Concomitant]
     Active Substance: ALLOPURINOL
  6. TRIHEXYPHENIDYL [Concomitant]
     Active Substance: TRIHEXYPHENIDYL
  7. FUROSEMIDE. [Concomitant]
     Active Substance: FUROSEMIDE
  8. ROPINIROLE. [Concomitant]
     Active Substance: ROPINIROLE
  9. FLUOXETINE [Concomitant]
     Active Substance: FLUOXETINE\FLUOXETINE HYDROCHLORIDE
     Indication: DEPRESSION

REACTIONS (5)
  - Neutropenia [Recovered/Resolved]
  - Thrombocytopenia [Not Recovered/Not Resolved]
  - Leukopenia [Recovered/Resolved]
  - Neutrophil count increased [Not Recovered/Not Resolved]
  - Death [Fatal]

NARRATIVE: CASE EVENT DATE: 20140930
